FAERS Safety Report 16964142 (Version 1)
Quarter: 2019Q4

REPORT INFORMATION
  Report Type: Spontaneous
  Country: BR (occurrence: BR)
  Receive Date: 20191026
  Receipt Date: 20191026
  Transmission Date: 20200122
  Serious: Yes (Other)
  Sender: FDA-Public Use
  Company Number: NVSC2019BR002164

PATIENT
  Age: 7 Year
  Sex: Female

DRUGS (1)
  1. AMOXICILLIN AND CLAVULANATE POTASSIUM [Suspect]
     Active Substance: AMOXICILLIN\CLAVULANATE POTASSIUM
     Indication: ASTHMA
     Dosage: 250+62.5 MG / 5 ML 75 ML, Q8H
     Route: 048
     Dates: start: 20191001, end: 20191005

REACTIONS (8)
  - Sleep terror [Recovering/Resolving]
  - Tremor [Recovering/Resolving]
  - Vomiting [Unknown]
  - Rash [Unknown]
  - Nausea [Unknown]
  - Dizziness [Unknown]
  - Diarrhoea [Unknown]
  - Abdominal pain upper [Unknown]

NARRATIVE: CASE EVENT DATE: 20191002
